FAERS Safety Report 5498024-9 (Version None)
Quarter: 2007Q4

REPORT INFORMATION
  Report Type: 
  Country: None (occurrence: None)
  Receive Date: 20071025
  Receipt Date: 20071016
  Transmission Date: 20080405
  Serious: Yes (Other)
  Sender: FDA-Public Use
  Company Number: US-PFIZER INC-2007075538

PATIENT
  Sex: Male
  Weight: 37.727 kg

DRUGS (3)
  1. SOLU-CORTEF [Suspect]
     Indication: ADRENOCORTICAL INSUFFICIENCY ACUTE
     Dates: start: 20070801, end: 20070801
  2. CORTEF [Suspect]
     Indication: ADDISON'S DISEASE
     Route: 048
  3. FLUDROCORTISONE ACETATE [Concomitant]
     Route: 048

REACTIONS (5)
  - ADRENOCORTICAL INSUFFICIENCY ACUTE [None]
  - ANAPHYLACTIC REACTION [None]
  - DYSPNOEA [None]
  - EYE SWELLING [None]
  - SNEEZING [None]
